FAERS Safety Report 14129626 (Version 3)
Quarter: 2017Q4

REPORT INFORMATION
  Report Type: Report from Study
  Country: CN (occurrence: CN)
  Receive Date: 20171026
  Receipt Date: 20171207
  Transmission Date: 20180321
  Serious: Yes (Other)
  Sender: FDA-Public Use
  Company Number: CN-BAYER-2017-176645

PATIENT
  Age: 60 Year
  Sex: Male

DRUGS (1)
  1. STIVARGA [Suspect]
     Active Substance: REGORAFENIB
     Indication: COLORECTAL CANCER
     Dosage: 160 MG, QD
     Route: 048
     Dates: start: 20170907, end: 20171121

REACTIONS (13)
  - Food refusal [Not Recovered/Not Resolved]
  - Insomnia [None]
  - Hypertension [None]
  - Pain [None]
  - Intentional product use issue [None]
  - Muscular weakness [None]
  - Discomfort [Recovering/Resolving]
  - Feeling abnormal [Unknown]
  - Gait inability [None]
  - Feeding disorder [None]
  - Dyspnoea [Recovering/Resolving]
  - Pain of skin [None]
  - Headache [None]

NARRATIVE: CASE EVENT DATE: 20171015
